FAERS Safety Report 10184631 (Version 2)
Quarter: 2014Q2

REPORT INFORMATION
  Report Type: Spontaneous
  Country: US (occurrence: US)
  Receive Date: 20140521
  Receipt Date: 20140521
  Transmission Date: 20141212
  Serious: Yes (Other)
  Sender: FDA-Public Use
  Company Number: US-RANBAXY-2011US-81119

PATIENT
  Age: 38 Year
  Sex: Female

DRUGS (3)
  1. ZOLPIDEM [Suspect]
     Indication: HEADACHE
     Dosage: UNK, DAILY
     Route: 048
  2. BUPROPION [Concomitant]
     Indication: DEPRESSION
     Dosage: UNK
     Route: 065
  3. VENLAFAXINE [Concomitant]
     Indication: ANXIETY
     Dosage: UNK
     Route: 065

REACTIONS (2)
  - Amnesia [Unknown]
  - Abnormal behaviour [Unknown]
